FAERS Safety Report 9681927 (Version 2)
Quarter: 2013Q4

REPORT INFORMATION
  Report Type: Report from Study
  Country: US (occurrence: US)
  Receive Date: 20131111
  Receipt Date: 20131216
  Transmission Date: 20140711
  Serious: Yes (Death, Hospitalization)
  Sender: FDA-Public Use
  Company Number: US-US-EMD SERONO, INC.-7248656

PATIENT
  Sex: Female

DRUGS (1)
  1. REBIF [Suspect]
     Indication: MULTIPLE SCLEROSIS
     Route: 058
     Dates: start: 20121214, end: 201309

REACTIONS (6)
  - Renal failure [Fatal]
  - Multi-organ failure [Fatal]
  - Septic shock [Fatal]
  - Diabetes mellitus [Unknown]
  - Multiple sclerosis [Unknown]
  - Pollakiuria [Unknown]
